FAERS Safety Report 7432107-9 (Version None)
Quarter: 2011Q2

REPORT INFORMATION
  Report Type: 
  Country: None (occurrence: None)
  Receive Date: 20110422
  Receipt Date: 20110419
  Transmission Date: 20111010
  Serious: No
  Sender: FDA-Public Use
  Company Number: US-B.I. PHARMACEUTICALS,INC./RIDGEFIELD-2011-BP-00636BP

PATIENT
  Age: 78 Year
  Sex: Female

DRUGS (10)
  1. AVAPRO [Concomitant]
  2. CARTIA XT [Concomitant]
     Dosage: 240 MG
  3. MOBIC [Suspect]
     Dosage: 15 MG
     Route: 048
  4. PRADAXA [Suspect]
     Indication: ATRIAL FIBRILLATION
     Dosage: 300 MG
     Route: 048
     Dates: start: 20101215
  5. METFORMIN [Concomitant]
     Indication: TYPE 2 DIABETES MELLITUS
  6. ADVAIR DISKUS 100/50 [Concomitant]
  7. LEVOTHYOXINE [Concomitant]
     Dosage: 0.125 MG
  8. PAXIL [Concomitant]
     Indication: ANXIETY
     Dosage: 10 MG
  9. ATENOLOL [Concomitant]
  10. AVALIDE [Concomitant]

REACTIONS (2)
  - SLEEP APNOEA SYNDROME [None]
  - INSOMNIA [None]
